FAERS Safety Report 24329943 (Version 2)
Quarter: 2024Q4

REPORT INFORMATION
  Report Type: Spontaneous
  Country: CN (occurrence: CN)
  Receive Date: 20240917
  Receipt Date: 20241101
  Transmission Date: 20250115
  Serious: Yes (Other)
  Sender: ALEXION PHARMACEUTICALS
  Company Number: 2024A208364

PATIENT
  Weight: 53 kg

DRUGS (12)
  1. FULVESTRANT [Suspect]
     Active Substance: FULVESTRANT
     Indication: Neoplasm malignant
     Dosage: 0.5 GR
  2. FULVESTRANT [Suspect]
     Active Substance: FULVESTRANT
     Dosage: 0.5 GR
  3. FULVESTRANT [Suspect]
     Active Substance: FULVESTRANT
     Dosage: 0.5 GR
  4. FULVESTRANT [Suspect]
     Active Substance: FULVESTRANT
     Dosage: 0.5 GR
  5. TRASTUZUMAB [Suspect]
     Active Substance: TRASTUZUMAB
     Indication: Neoplasm malignant
     Dosage: 318 MILLIGRAM, QD
  6. TRASTUZUMAB [Suspect]
     Active Substance: TRASTUZUMAB
     Dosage: 318 MILLIGRAM, QD
  7. TRASTUZUMAB [Suspect]
     Active Substance: TRASTUZUMAB
     Dosage: 318 MILLIGRAM, QD
  8. TRASTUZUMAB [Suspect]
     Active Substance: TRASTUZUMAB
     Dosage: 318 MILLIGRAM, QD
  9. GOSERELIN ACETATE [Suspect]
     Active Substance: GOSERELIN ACETATE
     Indication: Neoplasm malignant
     Dosage: 3.6 MILLIGRAM, QD
  10. GOSERELIN ACETATE [Suspect]
     Active Substance: GOSERELIN ACETATE
     Dosage: 3.6 MILLIGRAM, QD
  11. GOSERELIN ACETATE [Suspect]
     Active Substance: GOSERELIN ACETATE
     Dosage: 3.6 MILLIGRAM, QD
  12. GOSERELIN ACETATE [Suspect]
     Active Substance: GOSERELIN ACETATE
     Dosage: 3.6 MILLIGRAM, QD

REACTIONS (1)
  - Myelosuppression [Recovering/Resolving]
